FAERS Safety Report 6092784-4 (Version None)
Quarter: 2009Q1

REPORT INFORMATION
  Report Type: 
  Country: None (occurrence: None)
  Receive Date: 20090225
  Receipt Date: 20090210
  Transmission Date: 20090719
  Serious: Yes (Hospitalization)
  Sender: FDA-Public Use
  Company Number: PL-GENENTECH-255863

PATIENT
  Sex: Male
  Weight: 87 kg

DRUGS (1)
  1. BEVACIZUMAB [Suspect]
     Indication: NON-SMALL CELL LUNG CANCER
     Dosage: 1300 MG, Q3W
     Route: 042
     Dates: start: 20071015

REACTIONS (1)
  - ANAEMIA [None]
